FAERS Safety Report 4446167-0 (Version None)
Quarter: 2004Q3

REPORT INFORMATION
  Report Type: 
  Country: None (occurrence: None)
  Receive Date: 20040903
  Receipt Date: 20040826
  Transmission Date: 20050211
  Serious: Yes (Hospitalization)
  Sender: FDA-Public Use
  Company Number: 001-0981-991828

PATIENT
  Age: 41 Year
  Sex: Male
  Weight: 112.0385 kg

DRUGS (7)
  1. ATORVASTATIN (ATORVASTATIN) [Suspect]
     Indication: CORONARY ARTERY DISEASE
     Dosage: 10 MG (10 MG, 1 IN 1 D), ORAL
     Route: 048
     Dates: start: 19981026, end: 19981229
  2. OMEPRAZOLE [Concomitant]
  3. ASPIRIN [Concomitant]
  4. ATENOLOL [Concomitant]
  5. FOLIC ACID [Concomitant]
  6. QUINAPRIL HCL [Concomitant]
  7. TOCOPHEROL CONCENTRATE CAP [Concomitant]

REACTIONS (4)
  - INFLUENZA [None]
  - LOSS OF CONSCIOUSNESS [None]
  - STARING [None]
  - SYNCOPE [None]
